FAERS Safety Report 10180144 (Version 1)
Quarter: 2014Q2

REPORT INFORMATION
  Report Type: Spontaneous
  Country: NL (occurrence: None)
  Receive Date: 20140515
  Receipt Date: 20140515
  Transmission Date: 20141212
  Serious: Yes (Life-Threatening)
  Sender: FDA-Public Use
  Company Number: FK201401747

PATIENT
  Sex: Female

DRUGS (2)
  1. POTASSIUM CHLORIDE [Suspect]
     Indication: SEPTIC SHOCK
     Dosage: INTRAVENOUS (NOT OTHERWISE SPECIFIED)?
     Route: 042
  2. NOREPINEPHRINE [Suspect]
     Indication: SEPTIC SHOCK
     Dosage: INTRAVENOUS (NOT OTHERWISE SPECIFIED)?
     Route: 042

REACTIONS (6)
  - Local swelling [None]
  - Skin discolouration [None]
  - Infusion site vesicles [None]
  - Infusion site extravasation [None]
  - Infusion site necrosis [None]
  - Infusion site infection [None]
